FAERS Safety Report 18097302 (Version 4)
Quarter: 2020Q3

REPORT INFORMATION
  Report Type: Report from Study
  Country: AE (occurrence: AE)
  Receive Date: 20200731
  Receipt Date: 20200909
  Transmission Date: 20201103
  Serious: Yes (Hospitalization)
  Sender: FDA-Public Use
  Company Number: NVSC2020AE209924

PATIENT
  Age: 66 Year
  Sex: Female

DRUGS (1)
  1. ENTRESTO [Suspect]
     Active Substance: SACUBITRIL\VALSARTAN
     Indication: CARDIAC FAILURE
     Dosage: 100 MG, BID
     Route: 048
     Dates: start: 20190720

REACTIONS (14)
  - Fatigue [Unknown]
  - Confusional state [Unknown]
  - Dizziness [Unknown]
  - Dyspnoea [Not Recovered/Not Resolved]
  - Asthenia [Unknown]
  - Gait disturbance [Unknown]
  - Headache [Unknown]
  - Transient ischaemic attack [Not Recovered/Not Resolved]
  - Dysstasia [Not Recovered/Not Resolved]
  - Blood glucose decreased [Not Recovered/Not Resolved]
  - Cerebrovascular accident [Not Recovered/Not Resolved]
  - Hypoaesthesia [Not Recovered/Not Resolved]
  - Dysarthria [Unknown]
  - Tachycardia [Unknown]

NARRATIVE: CASE EVENT DATE: 202007
